FAERS Safety Report 11481926 (Version 2)
Quarter: 2015Q3

REPORT INFORMATION
  Report Type: Spontaneous
  Country: US (occurrence: US)
  Receive Date: 20150903
  Receipt Date: 20150903
  Transmission Date: 20151125
  Serious: Yes (Other)
  Sender: FDA-Public Use
  Company Number: US-ELI_LILLY_AND_COMPANY-US201201001825

PATIENT
  Sex: Female
  Weight: 82.54 kg

DRUGS (11)
  1. AMBIEN [Concomitant]
     Active Substance: ZOLPIDEM TARTRATE
  2. MOBIC [Concomitant]
     Active Substance: MELOXICAM
  3. ANALGESICS [Concomitant]
     Active Substance: UNSPECIFIED INGREDIENT
  4. NORCO [Concomitant]
     Active Substance: ACETAMINOPHEN\HYDROCODONE BITARTRATE
  5. CYMBALTA [Suspect]
     Active Substance: DULOXETINE HYDROCHLORIDE
     Dosage: 60 MG
     Route: 048
     Dates: start: 20120109
  6. SYNTHROID [Concomitant]
     Active Substance: LEVOTHYROXINE SODIUM
  7. CYMBALTA [Suspect]
     Active Substance: DULOXETINE HYDROCHLORIDE
     Dosage: 60 MG, QOD
  8. AVONEX [Concomitant]
     Active Substance: INTERFERON BETA-1A
     Dosage: UNK, WEEKLY (1/W)
  9. XANAX [Concomitant]
     Active Substance: ALPRAZOLAM
  10. NEURONTIN [Concomitant]
     Active Substance: GABAPENTIN
  11. CYMBALTA [Suspect]
     Active Substance: DULOXETINE HYDROCHLORIDE
     Indication: DEPRESSION
     Dosage: 60 MG, QD
     Dates: start: 2009, end: 2011

REACTIONS (14)
  - Fatigue [Unknown]
  - Suicidal ideation [Unknown]
  - Drug withdrawal syndrome [Not Recovered/Not Resolved]
  - Depression [Unknown]
  - Vomiting [Unknown]
  - Intentional product misuse [Recovered/Resolved]
  - Insomnia [Unknown]
  - Cold sweat [Unknown]
  - Bone pain [Unknown]
  - Personality change [Not Recovered/Not Resolved]
  - Pain [Unknown]
  - Multiple sclerosis [Unknown]
  - Hallucination, visual [Unknown]
  - Crying [Not Recovered/Not Resolved]
